FAERS Safety Report 8093138 (Version 5)
Quarter: 2013Q3

REPORT INFORMATION
  Report Type: Spontaneous
  Country: US (occurrence: US)
  Receive Date: 20110817
  Receipt Date: 20130710
  Transmission Date: 20140515
  Serious: Yes (Hospitalization)
  Sender: FDA-Public Use
  Company Number: US-BIOGENIDEC-2011BI030844

PATIENT
  Age: 68 Year
  Sex: Male

DRUGS (13)
  1. TYSABRI [Suspect]
     Indication: MULTIPLE SCLEROSIS
     Route: 042
     Dates: start: 20090904, end: 20130419
  2. MEDICATION (NOS) [Concomitant]
     Route: 048
  3. MEDICATION (NOS) [Concomitant]
     Route: 048
  4. FENTANYL [Concomitant]
     Indication: BACK PAIN
     Route: 037
  5. STEROID [Concomitant]
     Indication: BACK PAIN
     Route: 008
  6. PERCOCET [Concomitant]
  7. OXYCONTIN [Concomitant]
  8. PROPHYLAXIS ANTIBIOTICS [Concomitant]
     Indication: CATHETER PLACEMENT
  9. METFORMIN [Concomitant]
  10. OXYBUTYNIN [Concomitant]
     Route: 048
  11. KLONOPIN [Concomitant]
     Indication: MUSCLE SPASMS
  12. PROVIGIL [Concomitant]
  13. CYMBALTA [Concomitant]

REACTIONS (7)
  - Nephrolithiasis [Unknown]
  - Motor dysfunction [Unknown]
  - Pneumonia aspiration [Recovered/Resolved]
  - Urosepsis [Unknown]
  - Urinary tract infection [Recovered/Resolved]
  - Device malfunction [Recovered/Resolved]
  - Fall [Recovered/Resolved]
